FAERS Safety Report 22684106 (Version 3)
Quarter: 2024Q2

REPORT INFORMATION
  Report Type: Spontaneous
  Country: PL (occurrence: PL)
  Receive Date: 20230709
  Receipt Date: 20240402
  Transmission Date: 20240715
  Serious: Yes (Other)
  Sender: FDA-Public Use
  Company Number: PL-009507513-2306POL010093

PATIENT
  Sex: Male

DRUGS (92)
  1. FUROSEMIDE [Suspect]
     Active Substance: FUROSEMIDE
     Indication: Product used for unknown indication
     Dosage: UNK
     Route: 065
     Dates: start: 20221122, end: 20221122
  2. FUROSEMIDE [Suspect]
     Active Substance: FUROSEMIDE
     Dosage: UNK
     Route: 065
     Dates: start: 20230103, end: 20230103
  3. FUROSEMIDE [Suspect]
     Active Substance: FUROSEMIDE
     Dosage: UNK
     Route: 065
     Dates: start: 20230210, end: 20230210
  4. FUROSEMIDE [Suspect]
     Active Substance: FUROSEMIDE
     Dosage: UNK
     Route: 065
     Dates: start: 20230307, end: 20230307
  5. FUROSEMIDE [Suspect]
     Active Substance: FUROSEMIDE
     Dosage: UNK
     Route: 065
     Dates: start: 20230429, end: 20230429
  6. FUROSEMIDE [Suspect]
     Active Substance: FUROSEMIDE
     Dosage: UNK
     Route: 065
     Dates: start: 20230523, end: 20230523
  7. CISPLATIN [Suspect]
     Active Substance: CISPLATIN
     Indication: Product used for unknown indication
     Dosage: 200 MILLIGRAM (200 MG IV)
     Route: 042
     Dates: start: 20221122, end: 20221122
  8. CISPLATIN [Suspect]
     Active Substance: CISPLATIN
     Dosage: 200 MILLIGRAM (200 MG IV)
     Route: 042
     Dates: start: 20230103, end: 20230103
  9. CISPLATIN [Suspect]
     Active Substance: CISPLATIN
     Dosage: 200 MILLIGRAM (200 MG IV)
     Route: 042
     Dates: start: 20230210, end: 20230210
  10. CISPLATIN [Suspect]
     Active Substance: CISPLATIN
     Dosage: 200 MILLIGRAM (200 MG IV)
     Route: 042
     Dates: start: 20230307, end: 20230307
  11. CISPLATIN [Suspect]
     Active Substance: CISPLATIN
     Dosage: 70 MILLIGRAM (70 MG IV)
     Route: 042
     Dates: start: 20230430, end: 20230430
  12. CISPLATIN [Suspect]
     Active Substance: CISPLATIN
     Dosage: 70 MILLIGRAM (70 MG IV)
     Route: 042
     Dates: start: 20230429, end: 20230429
  13. CISPLATIN [Suspect]
     Active Substance: CISPLATIN
     Dosage: 60 MILLIGRAM (60 MG IV)
     Route: 042
     Dates: start: 20230501, end: 20230501
  14. CISPLATIN [Suspect]
     Active Substance: CISPLATIN
     Dosage: 70 MILLIGRAM (70 MG IV)
     Route: 042
     Dates: start: 20230523, end: 20230523
  15. CISPLATIN [Suspect]
     Active Substance: CISPLATIN
     Dosage: 70 MILLIGRAM (70 MG IV)
     Route: 042
     Dates: start: 20230524, end: 20230524
  16. CISPLATIN [Suspect]
     Active Substance: CISPLATIN
     Dosage: 60 MILLIGRAM (60 MG IV)
     Route: 042
     Dates: start: 20230525, end: 20230525
  17. CISPLATIN [Suspect]
     Active Substance: CISPLATIN
     Dosage: UNK
     Route: 065
  18. CISPLATIN [Suspect]
     Active Substance: CISPLATIN
     Dosage: 70 MILLIGRAM (70 MG IV)
     Route: 042
     Dates: start: 20230423, end: 20230423
  19. DEXAMETHASONE [Suspect]
     Active Substance: DEXAMETHASONE
     Indication: Product used for unknown indication
     Dosage: UNK
     Route: 065
     Dates: start: 20221122, end: 20221122
  20. DEXAMETHASONE [Suspect]
     Active Substance: DEXAMETHASONE
     Dosage: UNK
     Route: 065
     Dates: start: 20230103, end: 20230103
  21. DEXAMETHASONE [Suspect]
     Active Substance: DEXAMETHASONE
     Dosage: UNK
     Route: 065
     Dates: start: 20230210, end: 20230210
  22. DEXAMETHASONE [Suspect]
     Active Substance: DEXAMETHASONE
     Dosage: UNK
     Route: 065
     Dates: start: 20230307, end: 20230307
  23. DEXAMETHASONE [Suspect]
     Active Substance: DEXAMETHASONE
     Dosage: UNK
     Route: 065
     Dates: start: 20230429, end: 20230429
  24. DEXAMETHASONE [Suspect]
     Active Substance: DEXAMETHASONE
     Dosage: UNK
     Route: 065
     Dates: start: 20230523, end: 20230523
  25. EMEND [Suspect]
     Active Substance: APREPITANT
     Indication: Product used for unknown indication
     Dosage: UNK
     Route: 048
     Dates: start: 20221122, end: 20221122
  26. EMEND [Suspect]
     Active Substance: APREPITANT
     Dosage: UNK
     Route: 048
     Dates: start: 20230103, end: 20230103
  27. EMEND [Suspect]
     Active Substance: APREPITANT
     Dosage: UNK
     Route: 048
     Dates: start: 20230210, end: 20230210
  28. EMEND [Suspect]
     Active Substance: APREPITANT
     Dosage: UNK
     Route: 048
     Dates: start: 20230307, end: 20230307
  29. EMEND [Suspect]
     Active Substance: APREPITANT
     Dosage: UNK
     Route: 048
     Dates: start: 20230429
  30. EMEND [Suspect]
     Active Substance: APREPITANT
     Dosage: UNK
     Route: 048
     Dates: start: 20230523, end: 20230523
  31. EMEND [Suspect]
     Active Substance: APREPITANT
     Dosage: UNK
     Route: 065
  32. FLUOROURACIL [Suspect]
     Active Substance: FLUOROURACIL
     Indication: Product used for unknown indication
     Dosage: 2000 MILLIGRAM (2000 MG IV)
     Route: 042
     Dates: start: 20221123, end: 20221123
  33. FLUOROURACIL [Suspect]
     Active Substance: FLUOROURACIL
     Dosage: 2000 MILLIGRAM (2000 MG IV)
     Route: 042
     Dates: start: 20221124, end: 20221124
  34. FLUOROURACIL [Suspect]
     Active Substance: FLUOROURACIL
     Dosage: 2000 MILLIGRAM (2000 MG IV)
     Route: 042
     Dates: start: 20230106, end: 20230106
  35. FLUOROURACIL [Suspect]
     Active Substance: FLUOROURACIL
     Dosage: 2000 MILLIGRAM (2000 MG IV)
     Route: 042
     Dates: start: 20230210, end: 20230210
  36. FLUOROURACIL [Suspect]
     Active Substance: FLUOROURACIL
     Dosage: 2000 MILLIGRAM (2000 MG IV)
     Route: 042
     Dates: start: 20230213, end: 20230213
  37. FLUOROURACIL [Suspect]
     Active Substance: FLUOROURACIL
     Dosage: 2000 MILLIGRAM (2000 MG IV)
     Route: 042
     Dates: start: 20230309, end: 20230309
  38. FLUOROURACIL [Suspect]
     Active Substance: FLUOROURACIL
     Dosage: 2000 MILLIGRAM (2000 MG IV)
     Route: 042
     Dates: start: 20230310, end: 20230310
  39. FLUOROURACIL [Suspect]
     Active Substance: FLUOROURACIL
     Dosage: 2000 MILLIGRAM (2000 MG IV)
     Route: 042
     Dates: start: 20230307, end: 20230307
  40. FLUOROURACIL [Suspect]
     Active Substance: FLUOROURACIL
     Dosage: 2000 MILLIGRAM (2000 MG IV)
     Route: 042
     Dates: start: 20230103, end: 20230103
  41. FLUOROURACIL [Suspect]
     Active Substance: FLUOROURACIL
     Dosage: 2000 MILLIGRAM (2000 MG IV)
     Route: 042
     Dates: start: 20230105, end: 20230105
  42. FLUOROURACIL [Suspect]
     Active Substance: FLUOROURACIL
     Dosage: 2000 MILLIGRAM (2000 MG IV)
     Route: 042
     Dates: start: 20230104, end: 20230104
  43. FLUOROURACIL [Suspect]
     Active Substance: FLUOROURACIL
     Dosage: 2000 MILLIGRAM (2000 MG IV)
     Route: 042
     Dates: start: 20230212, end: 20230212
  44. FLUOROURACIL [Suspect]
     Active Substance: FLUOROURACIL
     Dosage: 2000 MILLIGRAM (2000 MG IV, 24 HOURS INFUSION)
     Route: 042
     Dates: start: 20221125, end: 20221125
  45. FLUOROURACIL [Suspect]
     Active Substance: FLUOROURACIL
     Dosage: 2000 MILLIGRAM (2000 MG IV)
     Route: 042
     Dates: start: 20230211, end: 20230211
  46. FLUOROURACIL [Suspect]
     Active Substance: FLUOROURACIL
     Dosage: 2000 MILLIGRAM (2000 MG IV)
     Route: 042
     Dates: start: 20221122, end: 20221122
  47. FLUOROURACIL [Suspect]
     Active Substance: FLUOROURACIL
     Dosage: 2000 MILLIGRAM (2000 MG IV)
     Route: 042
     Dates: start: 20230308, end: 20230308
  48. FLUOROURACIL [Suspect]
     Active Substance: FLUOROURACIL
     Dosage: 2000 MILLIGRAM (2000 MG IV)
     Route: 042
     Dates: start: 20221125, end: 20221125
  49. POTASSIUM CHLORIDE [Suspect]
     Active Substance: POTASSIUM CHLORIDE
     Indication: Product used for unknown indication
     Dosage: UNK
     Route: 065
     Dates: start: 20221122, end: 20221122
  50. POTASSIUM CHLORIDE [Suspect]
     Active Substance: POTASSIUM CHLORIDE
     Dosage: UNK
     Route: 065
     Dates: start: 20230103, end: 20230103
  51. POTASSIUM CHLORIDE [Suspect]
     Active Substance: POTASSIUM CHLORIDE
     Dosage: UNK
     Route: 065
     Dates: start: 20230210, end: 20230210
  52. POTASSIUM CHLORIDE [Suspect]
     Active Substance: POTASSIUM CHLORIDE
     Dosage: UNK
     Route: 065
     Dates: start: 20230307, end: 20230307
  53. POTASSIUM CHLORIDE [Suspect]
     Active Substance: POTASSIUM CHLORIDE
     Dosage: UNK
     Route: 065
     Dates: start: 20230429, end: 20230429
  54. POTASSIUM CHLORIDE [Suspect]
     Active Substance: POTASSIUM CHLORIDE
     Dosage: UNK
     Route: 065
     Dates: start: 20230523, end: 20230523
  55. MAGNESIUM SULFATE [Suspect]
     Active Substance: MAGNESIUM SULFATE\MAGNESIUM SULFATE HEPTAHYDRATE
     Indication: Product used for unknown indication
     Dosage: UNK
     Route: 042
     Dates: start: 20221122, end: 20221122
  56. MAGNESIUM SULFATE [Suspect]
     Active Substance: MAGNESIUM SULFATE\MAGNESIUM SULFATE HEPTAHYDRATE
     Dosage: UNK
     Route: 042
     Dates: start: 20230103, end: 20230103
  57. MAGNESIUM SULFATE [Suspect]
     Active Substance: MAGNESIUM SULFATE\MAGNESIUM SULFATE HEPTAHYDRATE
     Dosage: UNK
     Route: 042
     Dates: start: 20230210, end: 20230210
  58. MAGNESIUM SULFATE [Suspect]
     Active Substance: MAGNESIUM SULFATE\MAGNESIUM SULFATE HEPTAHYDRATE
     Dosage: UNK
     Route: 042
     Dates: start: 20230307, end: 20230307
  59. MAGNESIUM SULFATE [Suspect]
     Active Substance: MAGNESIUM SULFATE\MAGNESIUM SULFATE HEPTAHYDRATE
     Dosage: UNK
     Route: 042
     Dates: start: 20230429, end: 20230429
  60. MAGNESIUM SULFATE [Suspect]
     Active Substance: MAGNESIUM SULFATE\MAGNESIUM SULFATE HEPTAHYDRATE
     Dosage: UNK
     Route: 042
     Dates: start: 20230523, end: 20230523
  61. MANNITOL [Suspect]
     Active Substance: MANNITOL
     Indication: Product used for unknown indication
     Dosage: UNK
     Route: 065
     Dates: start: 20221122, end: 20221122
  62. MANNITOL [Suspect]
     Active Substance: MANNITOL
     Dosage: UNK
     Route: 065
     Dates: start: 20230103, end: 20230103
  63. MANNITOL [Suspect]
     Active Substance: MANNITOL
     Dosage: UNK
     Route: 065
     Dates: start: 20230210, end: 20230210
  64. MANNITOL [Suspect]
     Active Substance: MANNITOL
     Dosage: UNK
     Route: 065
     Dates: start: 20230307, end: 20230307
  65. MANNITOL [Suspect]
     Active Substance: MANNITOL
     Dosage: UNK
     Route: 065
     Dates: start: 20230429, end: 20230429
  66. MANNITOL [Suspect]
     Active Substance: MANNITOL
     Dosage: UNK
     Route: 065
     Dates: start: 20230523, end: 20230523
  67. METOCLOPRAMIDE [Suspect]
     Active Substance: METOCLOPRAMIDE
     Indication: Product used for unknown indication
     Dosage: UNK
     Route: 065
     Dates: start: 20221122, end: 20221122
  68. METOCLOPRAMIDE [Suspect]
     Active Substance: METOCLOPRAMIDE
     Dosage: UNK
     Route: 065
     Dates: start: 20230103, end: 20230103
  69. METOCLOPRAMIDE [Suspect]
     Active Substance: METOCLOPRAMIDE
     Dosage: UNK
     Route: 065
     Dates: start: 20230210, end: 20230210
  70. METOCLOPRAMIDE [Suspect]
     Active Substance: METOCLOPRAMIDE
     Dosage: UNK
     Route: 065
     Dates: start: 20230307, end: 20230307
  71. METOCLOPRAMIDE [Suspect]
     Active Substance: METOCLOPRAMIDE
     Dosage: UNK
     Route: 065
     Dates: start: 20230429, end: 20230429
  72. METOCLOPRAMIDE [Suspect]
     Active Substance: METOCLOPRAMIDE
     Dosage: UNK
     Route: 065
     Dates: start: 20230523, end: 20230523
  73. METOCLOPRAMIDE [Suspect]
     Active Substance: METOCLOPRAMIDE
     Dosage: UNK
     Route: 065
     Dates: start: 20221111, end: 20221111
  74. METOCLOPRAMIDE [Suspect]
     Active Substance: METOCLOPRAMIDE
     Dosage: UNK
     Route: 065
     Dates: start: 20230503, end: 20230503
  75. PEMBROLIZUMAB [Suspect]
     Active Substance: PEMBROLIZUMAB
     Indication: Product used for unknown indication
     Dosage: 200 MILLIGRAM (200 MILLIGRAM, 1SR DOSE)
     Route: 042
     Dates: start: 20221122, end: 20221122
  76. PEMBROLIZUMAB [Suspect]
     Active Substance: PEMBROLIZUMAB
     Dosage: 200 MILLIGRAM (200 MG, 2ND DOSE)
     Route: 042
     Dates: start: 20221208, end: 20221208
  77. PEMBROLIZUMAB [Suspect]
     Active Substance: PEMBROLIZUMAB
     Dosage: 200 MILLIGRAM (200 MG, 3RD DOSE)
     Route: 042
     Dates: start: 20230103, end: 20230103
  78. PEMBROLIZUMAB [Suspect]
     Active Substance: PEMBROLIZUMAB
     Dosage: 200 MILLIGRAM (200 MG IV, 4TH DOSE)
     Route: 042
     Dates: start: 20230210, end: 20230210
  79. PEMBROLIZUMAB [Suspect]
     Active Substance: PEMBROLIZUMAB
     Dosage: 200 MILLIGRAM (200 MG IV, 5TH DOSE)
     Route: 042
     Dates: start: 20230307, end: 20230307
  80. PEMBROLIZUMAB [Suspect]
     Active Substance: PEMBROLIZUMAB
     Dosage: 200 MILLIGRAM (200 MG IV DOSE 6)
     Route: 042
     Dates: start: 20230403, end: 20230403
  81. PEMBROLIZUMAB [Suspect]
     Active Substance: PEMBROLIZUMAB
     Dosage: 200 MILLIGRAM (200 MG IV, 7TH DOSE)
     Route: 042
     Dates: start: 20230429, end: 20230429
  82. PEMBROLIZUMAB [Suspect]
     Active Substance: PEMBROLIZUMAB
     Dosage: 200 MILLIGRAM (200 MG IV,8TH CYCLE)
     Route: 042
     Dates: start: 20230523, end: 20230523
  83. PEMBROLIZUMAB [Suspect]
     Active Substance: PEMBROLIZUMAB
     Dosage: 200 MILLIGRAM (200 MG IV, 9 DOSE)
     Route: 042
     Dates: start: 20230613, end: 20230613
  84. PEMBROLIZUMAB [Suspect]
     Active Substance: PEMBROLIZUMAB
     Dosage: UNK
     Route: 065
  85. ZOFRAN [Suspect]
     Active Substance: ONDANSETRON HYDROCHLORIDE
     Indication: Product used for unknown indication
     Dosage: UNK
     Route: 065
     Dates: start: 20221122, end: 20221122
  86. ZOFRAN [Suspect]
     Active Substance: ONDANSETRON HYDROCHLORIDE
     Dosage: UNK
     Route: 065
     Dates: start: 20230103, end: 20230103
  87. ZOFRAN [Suspect]
     Active Substance: ONDANSETRON HYDROCHLORIDE
     Dosage: UNK
     Route: 065
     Dates: start: 20230210, end: 20230210
  88. ZOFRAN [Suspect]
     Active Substance: ONDANSETRON HYDROCHLORIDE
     Dosage: UNK
     Route: 065
     Dates: start: 20230307, end: 20230307
  89. ZOFRAN [Suspect]
     Active Substance: ONDANSETRON HYDROCHLORIDE
     Dosage: UNK
     Route: 065
     Dates: start: 20230429, end: 20230429
  90. ZOFRAN [Suspect]
     Active Substance: ONDANSETRON HYDROCHLORIDE
     Dosage: UNK
     Route: 065
     Dates: start: 20230523, end: 20230523
  91. ZOFRAN [Suspect]
     Active Substance: ONDANSETRON HYDROCHLORIDE
     Dosage: UNK
     Route: 065
  92. DAPAGLIFLOZIN [Concomitant]
     Active Substance: DAPAGLIFLOZIN
     Indication: Product used for unknown indication
     Dosage: 10 MILLIGRAM, EVERY MORNING (10 MG 1 TABLET IN THE MORNING)
     Route: 065

REACTIONS (31)
  - Atrial fibrillation [Unknown]
  - Aortic stenosis [Unknown]
  - Anaemia [Recovering/Resolving]
  - Lumbar vertebral fracture [Unknown]
  - Aortic arteriosclerosis [Unknown]
  - Cardiac failure [Unknown]
  - Asthenia [Unknown]
  - Red cell distribution width increased [Unknown]
  - Eosinophil percentage decreased [Unknown]
  - Blood urea decreased [Unknown]
  - White blood cell count increased [Unknown]
  - Blood chloride decreased [Unknown]
  - Pleural effusion [Unknown]
  - Lung infiltration [Unknown]
  - Blood creatine decreased [Unknown]
  - Blood magnesium decreased [Unknown]
  - Blood urea increased [Unknown]
  - Supraventricular extrasystoles [Unknown]
  - Procalcitonin decreased [Unknown]
  - Oedema peripheral [Unknown]
  - C-reactive protein increased [Unknown]
  - Pulmonary septal thickening [Unknown]
  - Left atrial dilatation [Unknown]
  - Platelet count decreased [Unknown]
  - C-reactive protein decreased [Unknown]
  - Blood albumin decreased [Unknown]
  - Blood folate decreased [Unknown]
  - Protein total decreased [Unknown]
  - Eosinophil count decreased [Unknown]
  - Aortic valve calcification [Unknown]
  - Inappropriate schedule of product administration [Unknown]

NARRATIVE: CASE EVENT DATE: 20220101
